FAERS Safety Report 8146913-9 (Version None)
Quarter: 2012Q1

REPORT INFORMATION
  Report Type: 
  Country: None (occurrence: None)
  Receive Date: 20120217
  Receipt Date: 20120215
  Transmission Date: 20120608
  Serious: Yes (Life-Threatening)
  Sender: FDA-Public Use
  Company Number: DE-B.I. PHARMACEUTICALS,INC./RIDGEFIELD-2011-DE-06551DE

PATIENT
  Sex: Female
  Weight: 55 kg

DRUGS (4)
  1. MARCUMAR [Concomitant]
     Indication: ATRIAL FIBRILLATION
     Dates: start: 20110101, end: 20110801
  2. DABIGATRAN [Suspect]
     Indication: ATRIAL FIBRILLATION
     Dosage: 300 MG
     Route: 048
     Dates: start: 20110901, end: 20110901
  3. MARCUMAR [Concomitant]
     Dates: start: 20110901
  4. METOPROLOL TARTRATE [Concomitant]
     Dosage: 100 MG

REACTIONS (6)
  - RENAL FAILURE ACUTE [None]
  - FATIGUE [None]
  - FOOD AVERSION [None]
  - ASTHENIA [None]
  - NAUSEA [None]
  - AVERSION [None]
